FAERS Safety Report 6697386-4 (Version None)
Quarter: 2010Q2

REPORT INFORMATION
  Report Type: 
  Country: None (occurrence: None)
  Receive Date: 20100422
  Receipt Date: 20100315
  Transmission Date: 20101027
  Serious: Yes (Life-Threatening, Hospitalization, Other)
  Sender: FDA-Public Use
  Company Number: ACO_00645_2010

PATIENT
  Sex: Male
  Weight: 158.759 kg

DRUGS (5)
  1. ZANAFLEX [Suspect]
     Indication: MUSCLE SPASMS
     Dosage: (12 MG QID ORAL)
     Route: 048
     Dates: start: 20080801, end: 20100127
  2. ZANAFLEX [Suspect]
     Indication: PAIN
     Dosage: (12 MG QID ORAL)
     Route: 048
     Dates: start: 20080801, end: 20100127
  3. HYDROCODONE BITARTRATE [Suspect]
     Indication: MUSCLE SPASMS
     Dosage: (5/500 ONE EVERY SIX HOURS PRN ORAL)
     Route: 048
     Dates: start: 20060101
  4. INSULIN [Concomitant]
  5. METFORMIN HCL [Concomitant]

REACTIONS (9)
  - APPARENT LIFE THREATENING EVENT [None]
  - DIABETES MELLITUS INADEQUATE CONTROL [None]
  - DIABETIC KETOACIDOSIS [None]
  - DRUG DEPENDENCE [None]
  - DRUG WITHDRAWAL SYNDROME [None]
  - HYPERTENSION [None]
  - NAUSEA [None]
  - OVERDOSE [None]
  - VOMITING [None]
